FAERS Safety Report 25844878 (Version 2)
Quarter: 2025Q4

REPORT INFORMATION
  Report Type: Report from Study
  Country: US (occurrence: None)
  Receive Date: 20250925
  Receipt Date: 20251023
  Transmission Date: 20260118
  Serious: Yes (Other)
  Sender: UCB
  Company Number: US-UCBSA-2025049983

PATIENT

DRUGS (2)
  1. FENFLURAMINE [Suspect]
     Active Substance: FENFLURAMINE
     Indication: Seizure
     Dosage: 4 MILLILITER, 2X/DAY (BID)
  2. FENFLURAMINE [Suspect]
     Active Substance: FENFLURAMINE
     Indication: Severe myoclonic epilepsy of infancy
     Dosage: 4.4 MILLILITER, 2X/DAY (BID)

REACTIONS (5)
  - Status epilepticus [Recovered/Resolved]
  - Seizure [Recovered/Resolved]
  - Anxiety [Unknown]
  - Abnormal behaviour [Unknown]
  - Product dose omission issue [Unknown]
